FAERS Safety Report 13860061 (Version 2)
Quarter: 2017Q3

REPORT INFORMATION
  Report Type: Spontaneous
  Country: US (occurrence: US)
  Receive Date: 20170811
  Receipt Date: 20170926
  Transmission Date: 20171127
  Serious: Yes (Hospitalization)
  Sender: FDA-Public Use
  Company Number: US-IPSEN BIOPHARMACEUTICALS, INC.-2017-08320

PATIENT
  Age: 60 Year
  Sex: Male
  Weight: 67.2 kg

DRUGS (22)
  1. DILAUDID [Concomitant]
     Active Substance: HYDROMORPHONE HYDROCHLORIDE
     Indication: BREAKTHROUGH PAIN
     Route: 048
     Dates: start: 20141029
  2. CHRONULAC [Concomitant]
     Active Substance: LACTULOSE
     Route: 048
     Dates: start: 20140610
  3. SOMATULINE DEPOT [Suspect]
     Active Substance: LANREOTIDE ACETATE
     Indication: NEUROENDOCRINE TUMOUR
     Dosage: 90 MG
     Route: 058
     Dates: start: 20170719
  4. DELTASONE [Concomitant]
     Active Substance: PREDNISONE
     Dates: start: 20141215
  5. CREON [Concomitant]
     Active Substance: PANCRELIPASE AMYLASE\PANCRELIPASE LIPASE\PANCRELIPASE PROTEASE
     Route: 048
  6. POTASSIUM CHLORIDE. [Concomitant]
     Active Substance: POTASSIUM CHLORIDE
     Dosage: 20 MEQ
     Route: 048
  7. COMPAZINE [Concomitant]
     Active Substance: PROCHLORPERAZINE MALEATE
     Dates: start: 20150123
  8. PROVENTIL HFA [Concomitant]
     Active Substance: ALBUTEROL SULFATE
     Dates: start: 20160304
  9. MAALOX ANTACID [Concomitant]
     Active Substance: ALUMINUM HYDROXIDE\DIMETHICONE\MAGNESIUM HYDROXIDE
     Route: 048
  10. XELODA [Concomitant]
     Active Substance: CAPECITABINE
     Dosage: 2 TAB 1000 MG AT AM, 3 TAB 1500 MG AT PM
     Route: 048
     Dates: start: 20140610
  11. PROTONIX [Concomitant]
     Active Substance: PANTOPRAZOLE SODIUM
     Route: 048
     Dates: start: 20140116
  12. TEMODAR [Concomitant]
     Active Substance: TEMOZOLOMIDE
     Route: 048
     Dates: start: 20140610
  13. LOVENOX [Concomitant]
     Active Substance: ENOXAPARIN SODIUM
     Indication: PULMONARY EMBOLISM
     Route: 058
     Dates: start: 20141023
  14. CARAFATE [Concomitant]
     Active Substance: SUCRALFATE
     Route: 048
     Dates: start: 20140116
  15. IMODIUM [Concomitant]
     Active Substance: LOPERAMIDE HYDROCHLORIDE
  16. MS CONTIN [Concomitant]
     Active Substance: MORPHINE SULFATE
     Route: 048
     Dates: start: 20150527
  17. PEMBROLIZUMAB. [Suspect]
     Active Substance: PEMBROLIZUMAB
     Indication: NEUROENDOCRINE TUMOUR
     Route: 042
     Dates: start: 20170719
  18. DECADRON [Concomitant]
     Active Substance: DEXAMETHASONE
     Route: 048
  19. NOVOLIN N [Concomitant]
     Active Substance: INSULIN HUMAN
     Dosage: INJECTS 11 UNITS INTO THE SKIN NIGHTLY AND 11 UNITS THREE TIMES DAILY BEFORE MEALS
  20. MORPHINE [Concomitant]
     Active Substance: MORPHINE
     Indication: PAIN
  21. SANDOSTATIN LAR DEPOT [Concomitant]
     Active Substance: OCTREOTIDE ACETATE
     Route: 058
  22. SENNA PLUS [Concomitant]
     Active Substance: DOCUSATE SODIUM\SENNOSIDES\SENNOSIDES A AND B
     Dates: start: 20140721

REACTIONS (3)
  - Inappropriate schedule of drug administration [Unknown]
  - Food poisoning [Recovered/Resolved]
  - Gastroenteritis salmonella [Recovered/Resolved]

NARRATIVE: CASE EVENT DATE: 201707
